FAERS Safety Report 9103241 (Version 1)
Quarter: 2013Q1

REPORT INFORMATION
  Report Type: Spontaneous
  Country: US (occurrence: US)
  Receive Date: 20130219
  Receipt Date: 20130219
  Transmission Date: 20140127
  Serious: No
  Sender: FDA-Public Use
  Company Number: US-PFIZER INC-2013059365

PATIENT
  Age: 58 Year
  Sex: Male

DRUGS (2)
  1. VIAGRA [Suspect]
     Dosage: UNK
  2. TESTIM [Concomitant]
     Dosage: UNK MG, ONE TUBE A DAY DIRECTED

REACTIONS (5)
  - Erectile dysfunction [Not Recovered/Not Resolved]
  - Prostatic specific antigen increased [Unknown]
  - Libido decreased [Unknown]
  - Organic erectile dysfunction [Unknown]
  - Erectile dysfunction [Unknown]
